FAERS Safety Report 12584654 (Version 1)
Quarter: 2016Q3

REPORT INFORMATION
  Report Type: Spontaneous
  Country: US (occurrence: US)
  Receive Date: 20160722
  Receipt Date: 20160722
  Transmission Date: 20161109
  Serious: Yes (Other)
  Sender: FDA-Public Use
  Company Number: US-BAYER-2016-136238

PATIENT
  Sex: Female

DRUGS (4)
  1. BETASERON [Suspect]
     Active Substance: INTERFERON BETA-1B
     Indication: MULTIPLE SCLEROSIS
  2. YASMIN [Concomitant]
     Active Substance: DROSPIRENONE\ETHINYL ESTRADIOL
  3. PROTONIX [Concomitant]
     Active Substance: PANTOPRAZOLE SODIUM
  4. METFORMIN HCL [Concomitant]
     Active Substance: METFORMIN HYDROCHLORIDE

REACTIONS (6)
  - Influenza like illness [None]
  - Gastric disorder [None]
  - Multiple sclerosis relapse [None]
  - Fatigue [None]
  - Exposure during pregnancy [None]
  - Flushing [None]

NARRATIVE: CASE EVENT DATE: 2016
